FAERS Safety Report 17421495 (Version 2)
Quarter: 2020Q1

REPORT INFORMATION
  Report Type: Spontaneous
  Country: IN (occurrence: IN)
  Receive Date: 20200214
  Receipt Date: 20200311
  Transmission Date: 20200409
  Serious: Yes (Disabling)
  Sender: FDA-Public Use
  Company Number: IN-EISAI MEDICAL RESEARCH-EC-2020-070117

PATIENT
  Age: 51 Year
  Sex: Female
  Weight: 95 kg

DRUGS (2)
  1. ALFENCE (LORCASERIN) [Suspect]
     Active Substance: LORCASERIN
     Route: 048
     Dates: start: 2020, end: 2020
  2. ALFENCE (LORCASERIN) [Suspect]
     Active Substance: LORCASERIN
     Indication: PRODUCT USED FOR UNKNOWN INDICATION
     Route: 048
     Dates: end: 20200203

REACTIONS (4)
  - Pyrexia [Recovered/Resolved]
  - Headache [Recovered/Resolved]
  - Nervousness [Recovered/Resolved]
  - Oedema peripheral [Recovered/Resolved]

NARRATIVE: CASE EVENT DATE: 20200115
